FAERS Safety Report 4407659-3 (Version None)
Quarter: 2004Q3

REPORT INFORMATION
  Report Type: 
  Country: None (occurrence: None)
  Receive Date: 20040726
  Receipt Date: 20040701
  Transmission Date: 20050211
  Serious: Yes (Hospitalization, Other)
  Sender: FDA-Public Use
  Company Number: US-MERCK-0407USA00229

PATIENT
  Age: 76 Year
  Sex: Female
  Weight: 96 kg

DRUGS (12)
  1. LIPITOR [Concomitant]
     Route: 065
  2. CARDURA [Concomitant]
     Indication: HYPERTENSION
     Route: 048
     Dates: start: 20040217, end: 20040629
  3. LASIX [Concomitant]
     Indication: HYPERTENSION
     Route: 048
     Dates: start: 20040416, end: 20040629
  4. AMARYL [Concomitant]
     Indication: DIABETES MELLITUS NON-INSULIN-DEPENDENT
     Route: 048
     Dates: start: 20040617
  5. HYDROCHLOROTHIAZIDE [Concomitant]
     Route: 065
     Dates: end: 20040615
  6. PREVACID [Concomitant]
     Route: 065
  7. AVANDAMET [Suspect]
     Route: 065
     Dates: start: 20040601
  8. METOPROLOL [Concomitant]
     Indication: HYPERTENSION
     Route: 048
     Dates: start: 20040115
  9. KLOR-CON [Concomitant]
     Route: 048
  10. VIOXX [Suspect]
     Indication: BACK PAIN
     Route: 048
     Dates: start: 20040617, end: 20040629
  11. VIOXX [Suspect]
     Indication: OSTEOARTHRITIS
     Route: 048
     Dates: start: 20040617, end: 20040629
  12. DIOVAN [Concomitant]
     Indication: HYPERTENSION
     Route: 048
     Dates: start: 20040617

REACTIONS (4)
  - ASTHENIA [None]
  - CARDIAC FAILURE CONGESTIVE [None]
  - OVERDOSE [None]
  - TREATMENT NONCOMPLIANCE [None]
